FAERS Safety Report 24401497 (Version 2)
Quarter: 2025Q3

REPORT INFORMATION
  Report Type: Report from Study
  Country: CA (occurrence: CA)
  Receive Date: 20241007
  Receipt Date: 20250704
  Transmission Date: 20251021
  Serious: Yes (Hospitalization)
  Sender: CSL BEHRING
  Company Number: CA-BEH-2024177319

PATIENT
  Age: 63 Year
  Sex: Male
  Weight: 86 kg

DRUGS (3)
  1. HIZENTRA [Suspect]
     Active Substance: HUMAN IMMUNOGLOBULIN G
     Indication: Secondary cerebellar degeneration
     Dosage: 21 G, QW
     Route: 058
  2. HIZENTRA [Suspect]
     Active Substance: HUMAN IMMUNOGLOBULIN G
     Dosage: 21 G, QW
     Route: 058
  3. HIZENTRA [Suspect]
     Active Substance: HUMAN IMMUNOGLOBULIN G
     Dosage: 21 G QW
     Route: 065
     Dates: start: 20240816

REACTIONS (8)
  - Hospitalisation [Unknown]
  - Therapy interrupted [Unknown]
  - Eating disorder [Unknown]
  - Infusion site urticaria [Unknown]
  - Off label use [Unknown]
  - Tremor [Unknown]
  - Muscular weakness [Unknown]
  - Product dose omission in error [Unknown]

NARRATIVE: CASE EVENT DATE: 20240816
